FAERS Safety Report 15377489 (Version 1)
Quarter: 2018Q3

REPORT INFORMATION
  Report Type: Spontaneous
  Country: US (occurrence: US)
  Receive Date: 20180906
  Receipt Date: 20180906
  Transmission Date: 20181010
  Serious: Yes (Disabling, Other)
  Sender: FDA-Public Use
  Company Number: None

PATIENT
  Age: 63 Year
  Sex: Female
  Weight: 85.5 kg

DRUGS (1)
  1. THIORIDAZINE [Suspect]
     Active Substance: THIORIDAZINE
     Indication: SLEEP DEFICIT
     Dates: start: 20080101, end: 20130228

REACTIONS (1)
  - Cerebrovascular accident [None]

NARRATIVE: CASE EVENT DATE: 20150220
